FAERS Safety Report 4721434-1 (Version None)
Quarter: 2005Q3

REPORT INFORMATION
  Report Type: 
  Country: None (occurrence: None)
  Receive Date: 20050721
  Receipt Date: 20040831
  Transmission Date: 20060218
  Serious: Yes (Hospitalization)
  Sender: FDA-Public Use
  Company Number: US-BRISTOL-MYERS SQUIBB COMPANY-12688487

PATIENT
  Sex: Male

DRUGS (13)
  1. COUMADIN [Suspect]
     Indication: MYOCARDIAL INFARCTION
     Dosage: DOSAGES RANGED FROM 10MG TO 12.5MG TO 15MG; CURRENTLY ON 15MG
  2. ALDACTONE [Concomitant]
  3. LASIX [Concomitant]
  4. COREG [Concomitant]
  5. DIGOXIN [Concomitant]
  6. LISINOPRIL [Concomitant]
  7. CITALOPRAM [Concomitant]
  8. PROTONIX [Concomitant]
  9. TYLENOL [Concomitant]
  10. IMDUR [Concomitant]
  11. TRICOR [Concomitant]
  12. COLACE [Concomitant]
  13. SENOKOT [Concomitant]

REACTIONS (1)
  - INTERNATIONAL NORMALISED RATIO FLUCTUATION [None]
